FAERS Safety Report 5924750-0 (Version None)
Quarter: 2008Q4

REPORT INFORMATION
  Report Type: 
  Country: None (occurrence: None)
  Receive Date: 20081017
  Receipt Date: 20081006
  Transmission Date: 20090506
  Serious: Yes (Hospitalization, Other)
  Sender: FDA-Public Use
  Company Number: SPV1-2008-02134

PATIENT
  Age: 9 Year
  Sex: Male
  Weight: 41.7 kg

DRUGS (5)
  1. VYVANSE [Suspect]
     Indication: ATTENTION DEFICIT/HYPERACTIVITY DISORDER
     Dosage: 50 MG, 1X/DAY:QD, ORAL
     Route: 048
     Dates: start: 20080801
  2. PROZAC [Suspect]
     Indication: DEPRESSION
     Dosage: 1X/DAY:QD, ORAL
     Route: 048
     Dates: start: 20080917
  3. DIAZEPAM [Concomitant]
  4. CLONIDINE [Concomitant]
  5. TRILEPTAL [Concomitant]

REACTIONS (8)
  - BIPOLAR DISORDER [None]
  - DELUSIONAL PERCEPTION [None]
  - DEPRESSION [None]
  - MANIA [None]
  - MORBID THOUGHTS [None]
  - PANIC ATTACK [None]
  - SUICIDAL IDEATION [None]
  - SUICIDE ATTEMPT [None]
